FAERS Safety Report 4565409-4 (Version None)
Quarter: 2005Q1

REPORT INFORMATION
  Report Type: 
  Country: None (occurrence: None)
  Receive Date: 20050131
  Receipt Date: 20041022
  Transmission Date: 20050727
  Serious: Yes (Life-Threatening)
  Sender: FDA-Public Use
  Company Number: US-MERCK-0410USA03558

PATIENT
  Age: 46 Year
  Sex: Female

DRUGS (10)
  1. VIOXX [Suspect]
     Indication: ARTHRITIS
     Route: 048
     Dates: start: 20000525
  2. VIOXX [Suspect]
     Route: 048
     Dates: end: 20030101
  3. VIOXX [Suspect]
     Route: 065
     Dates: start: 20001218
  4. SYNTHROID [Concomitant]
     Route: 065
  5. ZOLOFT [Concomitant]
     Route: 065
  6. XANAX [Concomitant]
     Route: 065
  7. ACIPHEX [Concomitant]
     Route: 065
  8. RISPERDAL [Concomitant]
     Route: 048
  9. RISPERDAL [Concomitant]
     Route: 048
  10. ZANAFLEX [Concomitant]
     Route: 065

REACTIONS (15)
  - ANAL FISSURE [None]
  - ANXIETY [None]
  - CARPAL TUNNEL SYNDROME [None]
  - CHEST PAIN [None]
  - DYSPNOEA [None]
  - HAEMORRHOIDS [None]
  - HEADACHE [None]
  - HEART RATE INCREASED [None]
  - HYPERTENSION [None]
  - INSOMNIA [None]
  - NAUSEA [None]
  - OVERDOSE [None]
  - PSYCHOGENIC PAIN DISORDER [None]
  - STRESS [None]
  - VOMITING [None]
